FAERS Safety Report 10389119 (Version 1)
Quarter: 2014Q3

REPORT INFORMATION
  Report Type: Spontaneous
  Country: JP (occurrence: JP)
  Receive Date: 20140817
  Receipt Date: 20140817
  Transmission Date: 20150326
  Serious: No
  Sender: FDA-Public Use
  Company Number: PHHY2012JP135075

PATIENT
  Sex: Male

DRUGS (2)
  1. TASIGNA [Suspect]
     Active Substance: NILOTINIB
     Dosage: 400 MG, DAILY
  2. DASATINIB [Suspect]
     Active Substance: DASATINIB
     Dosage: 70 MG, UNK

REACTIONS (1)
  - Fatigue [Recovering/Resolving]
